FAERS Safety Report 5868595-9 (Version None)
Quarter: 2008Q3

REPORT INFORMATION
  Report Type: 
  Country: None (occurrence: None)
  Receive Date: 20080903
  Receipt Date: 20080820
  Transmission Date: 20090109
  Serious: Yes (Hospitalization)
  Sender: FDA-Public Use
  Company Number: US-ELI_LILLY_AND_COMPANY-US200807002906

PATIENT
  Sex: Female
  Weight: 62.132 kg

DRUGS (12)
  1. FORTEO [Suspect]
     Indication: OSTEOPOROSIS
     Dosage: 20 UG, DAILY (1/D)
     Dates: start: 20080609, end: 20080601
  2. FORTEO [Suspect]
     Dosage: 20 UG, EACH EVENING
     Dates: start: 20080601, end: 20080616
  3. FORTEO [Suspect]
     Dosage: 20 UG, EACH EVENING
     Dates: start: 20080715, end: 20080813
  4. PRILOSEC [Concomitant]
     Dosage: 20 MG, DAILY (1/D)
  5. ALEVE [Concomitant]
     Dosage: UNK, AS NEEDED
  6. CALCIUM WITH VITAMIN D /00944201/ [Concomitant]
     Dosage: 500MG/400IU
  7. MULTI-VITAMIN [Concomitant]
     Dosage: 1 D/F, DAILY (1/D)
  8. FLAXSEED OIL [Concomitant]
     Dosage: 2 G, DAILY (1/D)
  9. FLAXSEED OIL [Concomitant]
     Dosage: 3 G, DAILY (1/D)
  10. GLUCOSAMINE W/CHONDROITIN [Concomitant]
     Dosage: 1 D/F, 2/D
  11. NASONEX [Concomitant]
     Dosage: UNK, AS NEEDED
  12. METROCREAM [Concomitant]
     Dosage: UNK, 2/D

REACTIONS (13)
  - ASTHENIA [None]
  - FATIGUE [None]
  - FEELING COLD [None]
  - HEART RATE INCREASED [None]
  - HIATUS HERNIA [None]
  - INSOMNIA [None]
  - MALAISE [None]
  - MUSCULAR WEAKNESS [None]
  - NAUSEA [None]
  - PAIN [None]
  - PARAESTHESIA [None]
  - PRURITUS [None]
  - WEIGHT DECREASED [None]
